FAERS Safety Report 23396964 (Version 2)
Quarter: 2024Q1

REPORT INFORMATION
  Report Type: Spontaneous
  Country: CN (occurrence: CN)
  Receive Date: 20240112
  Receipt Date: 20240321
  Transmission Date: 20240409
  Serious: Yes (Other)
  Sender: FDA-Public Use
  Company Number: CN-KYOWAKIRIN-2024KK000260

PATIENT

DRUGS (1)
  1. TOREMIFENE [Suspect]
     Active Substance: TOREMIFENE
     Indication: Breast cancer
     Dosage: 60 MG, QD
     Route: 048
     Dates: start: 20180623

REACTIONS (2)
  - Endometrial thickening [Unknown]
  - Uterine polyp [Unknown]

NARRATIVE: CASE EVENT DATE: 20231218
